FAERS Safety Report 5470199-7 (Version None)
Quarter: 2007Q3

REPORT INFORMATION
  Report Type: 
  Country: None (occurrence: None)
  Receive Date: 20070927
  Receipt Date: 20070914
  Transmission Date: 20080115
  Serious: Yes (Hospitalization)
  Sender: FDA-Public Use
  Company Number: US-ELI_LILLY_AND_COMPANY-US200707001051

PATIENT
  Age: 54 Year
  Sex: Male
  Weight: 104 kg

DRUGS (20)
  1. SOMATROPIN [Suspect]
     Indication: HYPOPITUITARISM
     Dosage: 2 UG, DAILY (1/D)
     Dates: start: 20010914, end: 20070531
  2. HYDROCORTISONE [Concomitant]
     Indication: ADRENAL INSUFFICIENCY
     Dates: start: 19910901
  3. SYNTHROID [Concomitant]
     Indication: HYPOTHYROIDISM
     Dates: start: 19910901
  4. SYNTHROID [Concomitant]
     Dosage: 125 UG, DAILY (1/D)
  5. TESTOSTERONE [Concomitant]
     Indication: HYPOGONADISM MALE
     Dates: start: 19970901
  6. DIGOXIN [Concomitant]
     Indication: ATRIAL FIBRILLATION
     Dates: start: 19870101
  7. DIGOXIN [Concomitant]
     Dosage: 0.25 MG, DAILY (1/D)
     Route: 048
  8. WELLBUTRIN [Concomitant]
     Indication: SMOKING CESSATION THERAPY
     Dates: start: 20031101
  9. WELLBUTRIN [Concomitant]
     Dosage: 15 MG, 2/D
     Route: 048
  10. ASPIRIN [Concomitant]
     Indication: PROPHYLAXIS
     Dates: start: 19930101
  11. ASPIRIN [Concomitant]
     Dosage: 325 MG, DAILY (1/D)
     Route: 048
  12. LIPITOR [Concomitant]
     Indication: HYPERCHOLESTEROLAEMIA
     Dates: start: 20061221
  13. LIPITOR [Concomitant]
     Dosage: 20 MG, EACH EVENING
     Route: 048
  14. CLOPIDOGREL [Concomitant]
     Indication: ANTIPLATELET THERAPY
     Dates: start: 20061221
  15. CLOPIDOGREL [Concomitant]
     Dosage: 75 MG, DAILY (1/D)
     Route: 048
  16. TOPROL-XL [Concomitant]
     Indication: CARDIAC FAILURE
     Dosage: 50 MG, 2/D
     Route: 048
     Dates: start: 20061221
  17. LISINOPRIL [Concomitant]
     Indication: CARDIAC FAILURE
     Dates: start: 20061221
  18. AMITRIPTYLINE HCL [Concomitant]
     Indication: PAIN
  19. COUMADIN [Concomitant]
  20. COUMADIN [Concomitant]
     Dosage: 4.5 MG, DAILY (1/D)

REACTIONS (4)
  - ANTICOAGULATION DRUG LEVEL BELOW THERAPEUTIC [None]
  - BILIARY COLIC [None]
  - CARDIAC FAILURE CONGESTIVE [None]
  - CARDIOMYOPATHY [None]
